FAERS Safety Report 15932309 (Version 1)
Quarter: 2019Q1

REPORT INFORMATION
  Report Type: Spontaneous
  Country: US (occurrence: US)
  Receive Date: 20190117
  Receipt Date: 20190117
  Transmission Date: 20190417
  Serious: Yes (Hospitalization)
  Sender: FDA-Public Use
  Company Number: None

PATIENT
  Age: 68 Year
  Weight: 71.2 kg

DRUGS (3)
  1. 5-FLUOROURACIL (5-FU) [Suspect]
     Active Substance: FLUOROURACIL
     Dates: end: 20180914
  2. ELOXATIN [Concomitant]
     Active Substance: OXALIPLATIN
     Dates: end: 20180914
  3. LEUCOVORIN CALCIUM. [Suspect]
     Active Substance: LEUCOVORIN CALCIUM
     Dates: end: 20180914

REACTIONS (2)
  - Post procedural complication [None]
  - Stoma site extravasation [None]

NARRATIVE: CASE EVENT DATE: 20190111
